FAERS Safety Report 6504319-X (Version None)
Quarter: 2009Q4

REPORT INFORMATION
  Report Type: 
  Country: None (occurrence: None)
  Receive Date: 20091217
  Receipt Date: 20091209
  Transmission Date: 20100525
  Serious: Yes (Hospitalization)
  Sender: FDA-Public Use
  Company Number: ES-WATSON-2009-10571

PATIENT
  Age: 50 Year
  Sex: Female

DRUGS (5)
  1. CLONAZEPAM [Suspect]
     Indication: ANXIETY
     Dosage: 6 MG, DAILY
  2. ALPRAZOLAM [Suspect]
     Indication: MIGRAINE
  3. CLORAZEPATE DIPOTASSIUM (WATSON LABORATORIES) [Suspect]
     Indication: ANXIETY
     Dosage: 20 MG, DAILY
  4. IBUPROFEN TABLETS [Suspect]
     Indication: HEADACHE
     Dosage: 600 MG, DAILY
  5. ACETAMINOPHEN [Suspect]
     Indication: HEADACHE
     Dosage: 2500 MG, DAILY

REACTIONS (2)
  - DEPENDENCE [None]
  - DRUG ABUSE [None]
